FAERS Safety Report 7112547-8 (Version None)
Quarter: 2010Q4

REPORT INFORMATION
  Report Type: 
  Country: None (occurrence: None)
  Receive Date: 20101119
  Receipt Date: 20100930
  Transmission Date: 20110411
  Serious: Yes (Other)
  Sender: FDA-Public Use
  Company Number: SE-ELI_LILLY_AND_COMPANY-SE201009004353

PATIENT
  Age: 50 Year
  Sex: Male
  Weight: 140 kg

DRUGS (6)
  1. PLACEBO [Suspect]
     Indication: ACUTE MYOCARDIAL INFARCTION
     Dosage: UNK, OTHER (LOADING DOSE)
     Route: 048
     Dates: start: 20100901, end: 20100901
  2. PRASUGREL HYDROCHLORIDE [Suspect]
     Indication: ACUTE MYOCARDIAL INFARCTION
     Dosage: 60 MG, DAILY (1/D)
     Route: 048
     Dates: start: 20100901, end: 20100901
  3. FELODIPINE [Concomitant]
     Indication: HYPERTENSION
     Dosage: UNK, UNK
     Dates: start: 19950101, end: 20100902
  4. ATENOLOL [Concomitant]
     Indication: HYPERTENSION
     Dosage: UNK, UNK
     Dates: start: 19950101
  5. SIMVASTATIN [Concomitant]
     Indication: DYSLIPIDAEMIA
     Dosage: UNK, UNK
     Dates: start: 19950101
  6. ALLOPURINOL [Concomitant]
     Indication: GOUT
     Dosage: UNK, UNK
     Dates: start: 19950101

REACTIONS (1)
  - ACUTE MYOCARDIAL INFARCTION [None]
